FAERS Safety Report 9983318 (Version 1)
Quarter: 2014Q1

REPORT INFORMATION
  Report Type: Report from Study
  Country: US (occurrence: US)
  Receive Date: 20140307
  Receipt Date: 20140307
  Transmission Date: 20141002
  Serious: Yes (Other)
  Sender: FDA-Public Use
  Company Number: US-MYLANLABS-2014S1002269

PATIENT
  Age: 14 Year
  Sex: Male
  Weight: 107.05 kg

DRUGS (2)
  1. AMNESTEEM CAPSULES [Suspect]
     Indication: ACNE CONGLOBATA
  2. AMNESTEEM CAPSULES [Suspect]
     Indication: OFF LABEL USE

REACTIONS (3)
  - Self injurious behaviour [Not Recovered/Not Resolved]
  - Depressed mood [Not Recovered/Not Resolved]
  - Social problem [Not Recovered/Not Resolved]
